FAERS Safety Report 11736771 (Version 1)
Quarter: 2015Q4

REPORT INFORMATION
  Report Type: Spontaneous
  Country: US (occurrence: US)
  Receive Date: 20151110
  Receipt Date: 20151110
  Transmission Date: 20160304
  Serious: No
  Sender: FDA-Public Use
  Company Number: US-ELI_LILLY_AND_COMPANY-US201206005977

PATIENT
  Age: 58 Year
  Sex: Female

DRUGS (1)
  1. FORTEO [Suspect]
     Active Substance: TERIPARATIDE
     Indication: OSTEOPOROSIS
     Dosage: UNK UNK, UNKNOWN
     Route: 065
     Dates: start: 20120615, end: 201206

REACTIONS (14)
  - Cough [Unknown]
  - Asthenia [Unknown]
  - Gait disturbance [Unknown]
  - Adverse reaction [Unknown]
  - Injection site pain [Unknown]
  - Fatigue [Unknown]
  - Headache [Unknown]
  - Nausea [Unknown]
  - Intentional product misuse [Unknown]
  - Dyspnoea [Unknown]
  - Dysstasia [Unknown]
  - Chest pain [Unknown]
  - Presyncope [Unknown]
  - Dysphonia [Unknown]

NARRATIVE: CASE EVENT DATE: 201206
